FAERS Safety Report 9054745 (Version 1)
Quarter: 2013Q1

REPORT INFORMATION
  Report Type: Report from Study
  Country: BR (occurrence: BR)
  Receive Date: 20130208
  Receipt Date: 20130208
  Transmission Date: 20140127
  Serious: Yes (Hospitalization)
  Sender: FDA-Public Use
  Company Number: BR-AMGEN-KDC424413

PATIENT
  Age: 76 Year
  Sex: Male
  Weight: 79 kg

DRUGS (3)
  1. DARBEPOETIN ALFA [Suspect]
     Indication: CARDIAC FAILURE
     Dosage: UNK UNK, Q2WK
     Dates: start: 20090428, end: 20090803
  2. FUROSEMIDE [Concomitant]
  3. ANTIHYPERTENSIVES [Concomitant]
     Dosage: UNK UNK, UNK
     Dates: end: 200911

REACTIONS (1)
  - Psoriasis [Recovered/Resolved]
